FAERS Safety Report 6424672-5 (Version None)
Quarter: 2009Q4

REPORT INFORMATION
  Report Type: 
  Country: None (occurrence: None)
  Receive Date: 20091029
  Receipt Date: 20091023
  Transmission Date: 20100525
  Serious: Yes (Death)
  Sender: FDA-Public Use
  Company Number: 2009US003602

PATIENT
  Sex: Male
  Weight: 0.8 kg

DRUGS (3)
  1. AMBISOME [Suspect]
     Indication: PERITONITIS
     Dosage: 2.5 MG/KG, UID/QD, IV NOS
     Route: 042
  2. MEROPENEM [Suspect]
     Indication: PERITONITIS
     Dosage: UID/QD, IV NOS
     Route: 042
  3. VANCOMYCIN [Concomitant]

REACTIONS (2)
  - MULTI-ORGAN FAILURE [None]
  - RENAL FAILURE [None]
